FAERS Safety Report 18042709 (Version 1)
Quarter: 2020Q3

REPORT INFORMATION
  Report Type: Spontaneous
  Country: GB (occurrence: GB)
  Receive Date: 20200720
  Receipt Date: 20200720
  Transmission Date: 20201103
  Serious: Yes (Hospitalization)
  Sender: FDA-Public Use
  Company Number: GB-BEH-2020120006

PATIENT
  Age: 22 Year
  Sex: Female

DRUGS (1)
  1. PRIVIGEN [Suspect]
     Active Substance: HUMAN IMMUNOGLOBULIN G
     Dosage: 15 GRAM, Q3W
     Route: 042
     Dates: start: 2013

REACTIONS (3)
  - Seizure [Unknown]
  - Skin ulcer [Not Recovered/Not Resolved]
  - Pyrexia [Recovered/Resolved]
